FAERS Safety Report 21430165 (Version 3)
Quarter: 2022Q4

REPORT INFORMATION
  Report Type: Spontaneous
  Country: PL (occurrence: PL)
  Receive Date: 20221009
  Receipt Date: 20221130
  Transmission Date: 20230112
  Serious: Yes (Other)
  Sender: FDA-Public Use
  Company Number: PL-TEVA-2022-PL-2081379

PATIENT
  Age: 32 Year
  Sex: Male

DRUGS (1)
  1. ANAFRANIL [Suspect]
     Active Substance: CLOMIPRAMINE HYDROCHLORIDE
     Indication: Product used for unknown indication
     Route: 065

REACTIONS (5)
  - Paedophilia [Unknown]
  - Hallucination [Recovering/Resolving]
  - Bipolar disorder [Recovered/Resolved]
  - Hypersexuality [Unknown]
  - Mania [Recovered/Resolved]

NARRATIVE: CASE EVENT DATE: 20150101
